FAERS Safety Report 19597839 (Version 1)
Quarter: 2021Q3

REPORT INFORMATION
  Report Type: Spontaneous
  Country: CA (occurrence: CA)
  Receive Date: 20210723
  Receipt Date: 20210723
  Transmission Date: 20211014
  Serious: Yes (Other)
  Sender: FDA-Public Use
  Company Number: CA-ACCORD-232745

PATIENT
  Age: 56 Year
  Sex: Female
  Weight: 85 kg

DRUGS (4)
  1. LEFLUNOMIDE. [Concomitant]
     Active Substance: LEFLUNOMIDE
     Dosage: EVERY 1 DAYS
     Route: 048
  2. METHOTREXATE. [Suspect]
     Active Substance: METHOTREXATE
     Indication: RHEUMATOID ARTHRITIS
     Dosage: 1 EVERY 1 WEEKS
     Route: 048
  3. DIPHENHYDRAMINE HYDROCHLORIDE/PARACETAMOL [Concomitant]
     Active Substance: ACETAMINOPHEN\DIPHENHYDRAMINE HYDROCHLORIDE
     Dosage: AS REQUIRED
  4. CELEBREX [Concomitant]
     Active Substance: CELECOXIB
     Dosage: 1 EVERY 1 DAYS

REACTIONS (3)
  - Fatigue [Unknown]
  - COVID-19 [Unknown]
  - Drug ineffective [Unknown]
